FAERS Safety Report 11510998 (Version 1)
Quarter: 2015Q3

REPORT INFORMATION
  Report Type: Spontaneous
  Country: JP (occurrence: JP)
  Receive Date: 20150915
  Receipt Date: 20150915
  Transmission Date: 20151125
  Serious: Yes (Hospitalization)
  Sender: FDA-Public Use
  Company Number: JP-ABBVIE-15P-087-1463896-00

PATIENT
  Age: 77 Year
  Sex: Male

DRUGS (6)
  1. CLARITH TAB 200MG [Suspect]
     Active Substance: CLARITHROMYCIN
     Indication: MYCOBACTERIUM AVIUM COMPLEX INFECTION
     Route: 048
     Dates: start: 20150514, end: 20150516
  2. RIFAMPICIN [Suspect]
     Active Substance: RIFAMPIN
     Indication: MYCOBACTERIUM AVIUM COMPLEX INFECTION
     Route: 065
     Dates: start: 20150514, end: 20150516
  3. ESANBUTOL [Suspect]
     Active Substance: ETHAMBUTOL HYDROCHLORIDE
     Indication: MYCOBACTERIUM AVIUM COMPLEX INFECTION
     Route: 065
     Dates: start: 20150514, end: 20150516
  4. RIFAMPICIN [Suspect]
     Active Substance: RIFAMPIN
     Indication: LUNG INFECTION
  5. ESANBUTOL [Suspect]
     Active Substance: ETHAMBUTOL HYDROCHLORIDE
     Indication: LUNG INFECTION
  6. CLARITH TAB 200MG [Suspect]
     Active Substance: CLARITHROMYCIN
     Indication: LUNG INFECTION

REACTIONS (2)
  - Asthenia [Recovered/Resolved]
  - Dyspnoea [Recovered/Resolved]

NARRATIVE: CASE EVENT DATE: 20150516
